FAERS Safety Report 25907940 (Version 1)
Quarter: 2025Q4

REPORT INFORMATION
  Report Type: Spontaneous
  Country: CH (occurrence: CH)
  Receive Date: 20251010
  Receipt Date: 20251010
  Transmission Date: 20260118
  Serious: Yes (Other)
  Sender: SANDOZ
  Company Number: CH-MLMSERVICE-20250922-PI655179-00218-1

PATIENT
  Age: 13 Year
  Sex: Female

DRUGS (24)
  1. METHOTREXATE [Suspect]
     Active Substance: METHOTREXATE
     Indication: Diffuse large B-cell lymphoma
     Dosage: 15 MG, QD, DAY 1 R-COP REGIMEN
     Route: 037
  2. METHOTREXATE [Suspect]
     Active Substance: METHOTREXATE
     Indication: Renal neoplasm
     Dosage: 15 MG, QD, DAY 1, R-COPADM COURSES 1 + 2
     Route: 037
  3. METHOTREXATE [Suspect]
     Active Substance: METHOTREXATE
     Dosage: 15 MG, QD, DAY 2, R-CYM COURSES 1 + 2
     Route: 037
  4. METHOTREXATE [Suspect]
     Active Substance: METHOTREXATE
     Dosage: 3000 MG, QD, 50% DOSE REDUCTION (3000 MG/M? DAY 1),  ADMINISTERED 12 HOURS BEFORE DIALYSIS; R-COPADM
     Route: 037
  5. METHOTREXATE [Suspect]
     Active Substance: METHOTREXATE
     Dosage: 3000 MG, QD, 50% DOSE REDUCTION (3000 MG/M? DAY 1),  ADMINISTERED 12 HOURS BEFORE DIALYSIS; R-CYM CO
     Route: 037
  6. CALCITRIOL [Concomitant]
     Active Substance: CALCITRIOL
     Indication: Product used for unknown indication
     Dosage: UNK
     Route: 065
  7. CYCLOPHOSPHAMIDE [Concomitant]
     Active Substance: CYCLOPHOSPHAMIDE
     Indication: Renal neoplasm
     Dosage: 50% DOSE REDUCTION (250 MG/M? EVERY 12  HOURS ON DAYS 2?4), ADMINISTERED 12  HOURS BEFORE DIALYSIS;
     Route: 065
  8. CYCLOPHOSPHAMIDE [Concomitant]
     Active Substance: CYCLOPHOSPHAMIDE
     Indication: Diffuse large B-cell lymphoma
     Dosage: FULL DOSE (300 MG/M? DAY 1)  ADMINISTERED AT LEAST 12 HOURS BEFORE  DIALYSIS TO ENSURE ADEQUATE EXPO
     Route: 065
  9. CYTARABINE [Concomitant]
     Active Substance: CYTARABINE
     Indication: Diffuse large B-cell lymphoma
     Dosage: FULL DOSE (100 MG/M? CONTINUOUS INFUSION OVER 24 HOURS ON DAYS 2?6)
     Route: 065
  10. CYTARABINE [Concomitant]
     Active Substance: CYTARABINE
     Dosage: FULL DOSE (30 MG DAY 7)
     Route: 037
  11. DOXORUBICIN [Concomitant]
     Active Substance: DOXORUBICIN
     Indication: Diffuse large B-cell lymphoma
     Dosage: 75% DOSE REDUCTION (60 MG/M? DAY 2); R-COPADM COURSES 1 +
     Route: 065
  12. DOXORUBICIN [Concomitant]
     Active Substance: DOXORUBICIN
     Indication: Renal neoplasm
  13. ERYTHROPOIETIN [Concomitant]
     Active Substance: ERYTHROPOIETIN
     Indication: Product used for unknown indication
     Dosage: UNK
     Route: 065
  14. LEUCOVORIN [Concomitant]
     Active Substance: LEUCOVORIN\LEUCOVORIN CALCIUM
     Indication: Product used for unknown indication
     Dosage: FOLINIC ACID 15 MG/M2 6 HOURLY FROM H24  TO PLASMA CONCENTRATION OF METHOTREXATE  (ASSESSED EVERY 24
     Route: 065
  15. METHYLPREDNISOLONE [Concomitant]
     Active Substance: METHYLPREDNISOLONE
     Indication: Renal neoplasm
     Dosage: 3 MG DAY 1 AND DAY 6; R-COPADM  COURSES 1 + 2
     Route: 065
  16. METHYLPREDNISOLONE [Concomitant]
     Active Substance: METHYLPREDNISOLONE
     Indication: Diffuse large B-cell lymphoma
     Dosage: 3 MG, DAY 1; R-COP REGIMEN
     Route: 065
  17. METHYLPREDNISOLONE [Concomitant]
     Active Substance: METHYLPREDNISOLONE
     Dosage: FULL DOSE 3 MG DAY 7; R-CYM COURSES 1  + 2
     Route: 065
  18. PREDNISONE [Concomitant]
     Active Substance: PREDNISONE
     Indication: Diffuse large B-cell lymphoma
     Dosage: 60 MG/M2 DAY 1?7
     Route: 065
  19. PREDNISONE [Concomitant]
     Active Substance: PREDNISONE
     Indication: Renal neoplasm
     Dosage: FULL DOSE (60 MG/M? DAY 1?5); R-COPADM COURSES 1 + 2
     Route: 065
  20. RITUXIMAB [Concomitant]
     Active Substance: RITUXIMAB
     Indication: Renal neoplasm
     Dosage: 375 MG/M2 DAY-2 AND DAY 1 FULL DOSE; R-COPADM COURSES 1 + 2
     Route: 065
  21. RITUXIMAB [Concomitant]
     Active Substance: RITUXIMAB
     Dosage: 375 MG/M2 DAY-2 AND DAY 1 FULL DOSE; RCYM COURSES 1 + 2
     Route: 065
  22. RITUXIMAB [Concomitant]
     Active Substance: RITUXIMAB
     Indication: Diffuse large B-cell lymphoma
     Dosage: FULL DOSE (375 MG/M? DAY 6 (= DAY-2  1STCOPADM))
     Route: 065
  23. VINCRISTINE [Concomitant]
     Active Substance: VINCRISTINE
     Indication: Diffuse large B-cell lymphoma
     Dosage: FULL DOSE (1.0 MG/M? DAY 1); R-COP  REGIMEN
     Route: 065
  24. VINCRISTINE [Concomitant]
     Active Substance: VINCRISTINE
     Indication: Renal neoplasm
     Dosage: FULL DOSE (2.0 MG/M?, (CAPED TO 2.0 MG)  DAY 1); R-COPADM COURSES 1 + 2
     Route: 065

REACTIONS (3)
  - Mucosal haemorrhage [Unknown]
  - Myelosuppression [Unknown]
  - Mucosal inflammation [Unknown]
